FAERS Safety Report 5827961-8 (Version None)
Quarter: 2008Q3

REPORT INFORMATION
  Report Type: 
  Country: None (occurrence: None)
  Receive Date: 20080730
  Receipt Date: 20080724
  Transmission Date: 20090109
  Serious: Yes (Other)
  Sender: FDA-Public Use
  Company Number: US-PFIZER INC-2008061865

PATIENT
  Sex: Male
  Weight: 81.8 kg

DRUGS (2)
  1. VISTARIL PARENTERAL SOLUTION [Suspect]
     Route: 042
     Dates: start: 20040924, end: 20040924
  2. ATIVAN [Concomitant]

REACTIONS (6)
  - CONVULSION [None]
  - DYSKINESIA [None]
  - LOSS OF CONSCIOUSNESS [None]
  - MALAISE [None]
  - PARADOXICAL DRUG REACTION [None]
  - TREMOR [None]
